FAERS Safety Report 9171149 (Version 1)
Quarter: 2013Q1

REPORT INFORMATION
  Report Type: Spontaneous
  Country: US (occurrence: None)
  Receive Date: 20130312
  Receipt Date: 20130312
  Transmission Date: 20140127
  Serious: Yes (Other)
  Sender: FDA-Public Use
  Company Number: USW201302-000021

PATIENT
  Age: 72 Year
  Sex: Male
  Weight: 108.86 kg

DRUGS (4)
  1. APOKYN (APOMORPHINE HYDROCHLORIDE) (APOMORPHINE HYDROCHLORIDE) [Suspect]
     Indication: PARKINSON^S DISEASE
     Dates: start: 201212, end: 20130204
  2. CARBIDOPA/LEVODOPA [Concomitant]
  3. CARBIDOPA/LEVODOPA ODT [Concomitant]
  4. PRAMIPEXOLE [Concomitant]

REACTIONS (5)
  - Constipation [None]
  - Abdominal pain [None]
  - Infection [None]
  - Contusion [None]
  - Abdominal mass [None]
